FAERS Safety Report 11499672 (Version 1)
Quarter: 2015Q3

REPORT INFORMATION
  Report Type: Report from Study
  Country: US (occurrence: US)
  Receive Date: 20150914
  Receipt Date: 20150914
  Transmission Date: 20151125
  Serious: Yes (Other)
  Sender: FDA-Public Use
  Company Number: US-ROCHE-1631961

PATIENT

DRUGS (5)
  1. INTERFERON ALFA-2A [Suspect]
     Active Substance: INTERFERON ALFA-2A
     Indication: HEPATITIS C
     Route: 065
  2. PEG-INTERFERON ALFA 2A [Suspect]
     Active Substance: PEGINTERFERON ALFA-2A
     Indication: HEPATITIS C
     Route: 065
  3. SOFOSBUVIR [Suspect]
     Active Substance: SOFOSBUVIR
     Indication: HEPATITIS C
     Route: 048
  4. RIBAVIRIN. [Suspect]
     Active Substance: RIBAVIRIN
     Indication: HEPATITIS C
     Route: 048
  5. SIMEPREVIR [Suspect]
     Active Substance: SIMEPREVIR
     Indication: HEPATITIS C
     Route: 048

REACTIONS (15)
  - Headache [Unknown]
  - Nausea [Unknown]
  - Insomnia [Unknown]
  - Pruritus [Unknown]
  - Photosensitivity reaction [Unknown]
  - Hypokalaemia [Unknown]
  - Dyspnoea [Unknown]
  - Renal failure [Unknown]
  - Fatigue [Unknown]
  - Pancreatitis [Unknown]
  - Blood bilirubin increased [Unknown]
  - Anaemia [Unknown]
  - Treatment failure [Unknown]
  - Rash [Unknown]
  - Asthenia [Unknown]
